FAERS Safety Report 9471864 (Version 1)
Quarter: 2013Q3

REPORT INFORMATION
  Report Type: Spontaneous
  Country: SE (occurrence: SE)
  Receive Date: 20130822
  Receipt Date: 20130822
  Transmission Date: 20140515
  Serious: Yes (Life-Threatening, Hospitalization, Disabling)
  Sender: FDA-Public Use
  Company Number: SE-009507513-1308SWE006462

PATIENT
  Age: 45 Year
  Sex: Female

DRUGS (5)
  1. TRILAFON DECANOATE [Suspect]
     Dosage: UNK
     Dates: start: 19930622
  2. CISORDINOL TABLETS [Suspect]
     Dosage: UNK
     Dates: start: 19930622
  3. RISPERDAL [Suspect]
  4. ZYPREXA [Suspect]
  5. ABILIFY [Concomitant]

REACTIONS (2)
  - Fatigue [Not Recovered/Not Resolved]
  - Hunger [Not Recovered/Not Resolved]
